FAERS Safety Report 17049097 (Version 7)
Quarter: 2020Q3

REPORT INFORMATION
  Report Type: Report from Study
  Country: DE (occurrence: DE)
  Receive Date: 20191119
  Receipt Date: 20200709
  Transmission Date: 20201102
  Serious: Yes (Other)
  Sender: FDA-Public Use
  Company Number: DE-PFIZER INC-2019494840

PATIENT
  Age: 10 Year
  Sex: Male

DRUGS (13)
  1. SOMATROPIN. [Suspect]
     Active Substance: SOMATROPIN
     Dosage: 1 MG, 1X/DAY
     Route: 058
     Dates: start: 20100909
  2. SOMATROPIN. [Suspect]
     Active Substance: SOMATROPIN
     Dosage: 0.5 MG, 1X/DAY
     Route: 058
     Dates: start: 201812
  3. MIMPARA [Concomitant]
     Active Substance: CINACALCET HYDROCHLORIDE
     Indication: PROPHYLAXIS
     Dosage: 10 MG, 1X/DAY
     Route: 048
     Dates: start: 20100204, end: 20170824
  4. BUROSUMAB [Concomitant]
     Active Substance: BUROSUMAB
     Indication: PHOSPHORUS METABOLISM DISORDER
     Dosage: 20 MG EVERY 14 DAYS
     Route: 058
     Dates: start: 20170824
  5. SOMATROPIN. [Suspect]
     Active Substance: SOMATROPIN
     Dosage: UNK
     Route: 065
     Dates: start: 20170411
  6. NATRIUMGLYCEROPHOSPHAT [Concomitant]
     Indication: PHOSPHORUS METABOLISM DISORDER
     Dosage: 5 ML, 1X/DAY
     Route: 048
     Dates: start: 20081013, end: 20170817
  7. SOMATROPIN. [Suspect]
     Active Substance: SOMATROPIN
     Indication: X-LINKED CHROMOSOMAL DISORDER
     Dosage: 1.8 MG, 1X/DAY (10 MG/1.5 ML SOLUTION FOR INJECTION)
     Route: 058
     Dates: start: 20100909
  8. ROCALTROL [Concomitant]
     Active Substance: CALCITRIOL
     Indication: PROPHYLAXIS
     Dosage: 0.2 UG, 1X/DAY
     Route: 048
     Dates: start: 20090129, end: 20111020
  9. VIGANTOLETTEN [Concomitant]
     Active Substance: CHOLECALCIFEROL
     Indication: PROPHYLAXIS
  10. EINSALPHA [Concomitant]
     Indication: PHOSPHORUS METABOLISM DISORDER
     Dosage: UNK UG/ML
     Dates: start: 20120124, end: 20170824
  11. VIGANTOLETTEN [Concomitant]
     Active Substance: CHOLECALCIFEROL
     Indication: HEREDITARY HYPOPHOSPHATAEMIC RICKETS
     Dosage: 1 DF, 1X/DAY
     Route: 048
     Dates: start: 20081013, end: 20131128
  12. LECITHIN [Concomitant]
     Active Substance: LECITHIN
     Indication: PROPHYLAXIS
     Dosage: UNK
     Route: 048
     Dates: start: 20130320, end: 20170824
  13. SOMATROPIN. [Suspect]
     Active Substance: SOMATROPIN
     Dosage: 0.5 MG, DAILY
     Route: 065
     Dates: start: 201701

REACTIONS (4)
  - Headache [Recovered/Resolved]
  - Vomiting [Recovered/Resolved]
  - Idiopathic intracranial hypertension [Recovering/Resolving]
  - Hypermetropia [Not Recovered/Not Resolved]

NARRATIVE: CASE EVENT DATE: 201607
